FAERS Safety Report 5173142-3 (Version None)
Quarter: 2006Q4

REPORT INFORMATION
  Report Type: 
  Country: None (occurrence: None)
  Receive Date: 20061207
  Receipt Date: 20061207
  Transmission Date: 20070319
  Serious: Yes (Death)
  Sender: FDA-Public Use
  Company Number: None

PATIENT
  Age: 20 Year
  Sex: Female
  Weight: 58.9676 kg

DRUGS (1)
  1. METHADONE HCL [Suspect]
     Indication: HEADACHE
     Dates: start: 19990310, end: 19990311

REACTIONS (1)
  - OVERDOSE [None]
